FAERS Safety Report 6905725 (Version 3)
Quarter: 2019Q1

REPORT INFORMATION
  Report Type: Report from Study
  Country: JP (occurrence: JP)
  Receive Date: 20090210
  Receipt Date: 20190108
  Transmission Date: 20190418
  Serious: Yes (Death, Hospitalization, Other)
  Sender: FDA-Public Use
  Company Number: PHHY2009JP04244

PATIENT
  Age: 61 Year
  Sex: Male

DRUGS (19)
  1. CYLOCIDE [Suspect]
     Active Substance: CYTARABINE
     Indication: PRODUCT USED FOR UNKNOWN INDICATION
     Dosage: 40 MG DAILY, IS
     Route: 065
     Dates: start: 20081003, end: 20081003
  2. PREDONINE [Concomitant]
     Active Substance: PREDNISOLONE
     Dosage: 30 MG
     Route: 048
     Dates: start: 20080905, end: 20080918
  3. METHOTREXATE. [Suspect]
     Active Substance: METHOTREXATE
     Indication: PRODUCT USED FOR UNKNOWN INDICATION
     Dosage: 15 MG DAILY, IS
     Route: 065
     Dates: start: 20081003, end: 20081003
  4. CYLOCIDE [Suspect]
     Active Substance: CYTARABINE
     Dosage: 3200 MG DAILY
     Route: 042
  5. SOL MEDROL [Suspect]
     Active Substance: METHYLPREDNISOLONE SODIUM SUCCINATE
     Indication: PRODUCT USED FOR UNKNOWN INDICATION
     Dosage: 100 MG
     Route: 042
     Dates: start: 20081022, end: 20081024
  6. ONCOVIN [Suspect]
     Active Substance: VINCRISTINE SULFATE
     Indication: PRODUCT USED FOR UNKNOWN INDICATION
     Dosage: 2 MG
     Route: 042
     Dates: start: 20080905, end: 20080919
  7. DAUNOMYCIN [Concomitant]
     Active Substance: DAUNORUBICIN
     Indication: PRODUCT USED FOR UNKNOWN INDICATION
     Dosage: 50 MG
     Route: 042
     Dates: start: 20080905, end: 20080907
  8. DIFLUCAN [Concomitant]
     Active Substance: FLUCONAZOLE
     Indication: PRODUCT USED FOR UNKNOWN INDICATION
     Dosage: 200 MG
     Route: 048
     Dates: start: 20080905, end: 20080918
  9. ENDOXAN [Concomitant]
     Active Substance: CYCLOPHOSPHAMIDE
     Indication: PRODUCT USED FOR UNKNOWN INDICATION
     Dosage: 1200 MG
     Route: 042
     Dates: start: 20080905, end: 20080905
  10. TAKEPRON [Concomitant]
     Active Substance: LANSOPRAZOLE
     Indication: PRODUCT USED FOR UNKNOWN INDICATION
     Dosage: 15 MG
     Route: 048
     Dates: start: 20081014, end: 20081101
  11. PREDONINE [Concomitant]
     Active Substance: PREDNISOLONE
     Indication: PRODUCT USED FOR UNKNOWN INDICATION
     Dosage: 90 MG
     Route: 048
     Dates: start: 20080905, end: 20080918
  12. GLIVEC [Suspect]
     Active Substance: IMATINIB MESYLATE
     Dosage: 300 MG DAILY
     Route: 048
     Dates: start: 20081025, end: 20081031
  13. DECADRON [Concomitant]
     Active Substance: DEXAMETHASONE
     Indication: PRODUCT USED FOR UNKNOWN INDICATION
     Dosage: 4 MG, IS
     Route: 065
     Dates: start: 20081003, end: 20081022
  14. METHOTREXATE. [Suspect]
     Active Substance: METHOTREXATE
     Dosage: 1600 MG DAILY
     Route: 042
     Dates: start: 20081022, end: 20081022
  15. GLIVEC [Suspect]
     Active Substance: IMATINIB MESYLATE
     Indication: ACUTE LYMPHOCYTIC LEUKAEMIA
     Dosage: 600 MG DAILY
     Route: 048
     Dates: start: 20080912, end: 20080925
  16. DECADRON [Concomitant]
     Active Substance: DEXAMETHASONE
     Route: 065
  17. GLIVEC [Suspect]
     Active Substance: IMATINIB MESYLATE
     Dosage: 200 MG DAILY
     Route: 048
     Dates: start: 20081008, end: 20081021
  18. METHOTREXATE. [Suspect]
     Active Substance: METHOTREXATE
     Dosage: 15 MG DAILY, IS
     Route: 065
     Dates: start: 20081022, end: 20081022
  19. FAMOTIDINE. [Concomitant]
     Active Substance: FAMOTIDINE
     Indication: PRODUCT USED FOR UNKNOWN INDICATION
     Dosage: 40 MG
     Route: 048
     Dates: start: 20080905, end: 20081013

REACTIONS (25)
  - Cardiac arrest [Fatal]
  - Dysphagia [Unknown]
  - Red blood cell count decreased [Unknown]
  - Jaundice [Fatal]
  - Pneumonia [Fatal]
  - Rash [Recovered/Resolved]
  - Ileus paralytic [Recovered/Resolved]
  - Basophil count decreased [Unknown]
  - Pain in extremity [Unknown]
  - Haemoglobin decreased [Unknown]
  - Disease progression [Unknown]
  - Multiple organ dysfunction syndrome [Fatal]
  - Respiratory arrest [Fatal]
  - Stomatitis [Not Recovered/Not Resolved]
  - Mucous membrane disorder [Fatal]
  - Liver disorder [Fatal]
  - Muscular weakness [Unknown]
  - Hypoaesthesia [Recovered/Resolved]
  - Renal disorder [Not Recovered/Not Resolved]
  - Platelet count decreased [Unknown]
  - Hepatic failure [Fatal]
  - Staphylococcal sepsis [Recovered/Resolved]
  - Febrile neutropenia [Recovered/Resolved]
  - Neutrophil count decreased [Unknown]
  - Haematocrit decreased [Unknown]

NARRATIVE: CASE EVENT DATE: 20080915
